FAERS Safety Report 19360118 (Version 2)
Quarter: 2021Q3

REPORT INFORMATION
  Report Type: Report from Study
  Country: US (occurrence: US)
  Receive Date: 20210602
  Receipt Date: 20210826
  Transmission Date: 20211014
  Serious: Yes (Other)
  Sender: FDA-Public Use
  Company Number: NVSC2021US113962

PATIENT
  Age: 68 Year
  Sex: Female
  Weight: 54.4 kg

DRUGS (10)
  1. OMADACYCLINE. [Concomitant]
     Active Substance: OMADACYCLINE
     Indication: PRODUCT USED FOR UNKNOWN INDICATION
     Dosage: UNK
     Route: 065
     Dates: end: 20210417
  2. OMADACYCLINE. [Concomitant]
     Active Substance: OMADACYCLINE
     Dosage: 500 MG, QD
     Route: 065
     Dates: end: 20210503
  3. CEFOXITIN [Suspect]
     Active Substance: CEFOXITIN SODIUM
     Indication: PRODUCT USED FOR UNKNOWN INDICATION
     Dosage: 0.2 MG, Q8H
     Route: 042
     Dates: end: 202103
  4. CEFOXITIN [Suspect]
     Active Substance: CEFOXITIN SODIUM
     Dosage: 1.5 G, Q8H
     Route: 042
     Dates: start: 20200912
  5. CEFOXITIN [Suspect]
     Active Substance: CEFOXITIN SODIUM
     Dosage: 3 G, Q8GRS
     Route: 042
  6. LINEZOLID. [Concomitant]
     Active Substance: LINEZOLID
     Indication: PRODUCT USED FOR UNKNOWN INDICATION
     Dosage: 600 MG, QD
     Route: 065
     Dates: end: 20210417
  7. TIGECYCLINE. [Concomitant]
     Active Substance: TIGECYCLINE
     Indication: PRODUCT USED FOR UNKNOWN INDICATION
     Dosage: 25 MG, Q12H
     Route: 042
     Dates: end: 202103
  8. IMIPENEM [Concomitant]
     Active Substance: IMIPENEM
     Indication: PRODUCT USED FOR UNKNOWN INDICATION
     Dosage: 500 MG, QD
     Route: 042
     Dates: start: 20210120
  9. IMIPENEM [Concomitant]
     Active Substance: IMIPENEM
     Dosage: 500 MG, QD
     Route: 042
     Dates: start: 20210129, end: 202103
  10. LAMPRENE [Suspect]
     Active Substance: CLOFAZIMINE
     Indication: MYCOBACTERIUM ABSCESSUS INFECTION
     Dosage: 100 MG, QD
     Route: 048
     Dates: start: 20201115, end: 20210417

REACTIONS (19)
  - Aphonia [Recovering/Resolving]
  - Hypomagnesaemia [Unknown]
  - Asthenia [Recovered/Resolved]
  - Renal injury [Recovered/Resolved]
  - Dysphonia [Unknown]
  - Nausea [Recovered/Resolved]
  - Dyspnoea [Unknown]
  - Chills [Unknown]
  - Decreased appetite [Unknown]
  - Dizziness [Unknown]
  - Fatigue [Unknown]
  - Tremor [Unknown]
  - Hepatic enzyme increased [Unknown]
  - Oxygen saturation decreased [Unknown]
  - Blood creatinine increased [Unknown]
  - Post lumbar puncture syndrome [Unknown]
  - Pain in extremity [Unknown]
  - Pain [Unknown]
  - Hypokalaemia [Unknown]

NARRATIVE: CASE EVENT DATE: 20201115
